FAERS Safety Report 24285449 (Version 1)
Quarter: 2024Q3

REPORT INFORMATION
  Report Type: Spontaneous
  Country: DE (occurrence: DE)
  Receive Date: 20240905
  Receipt Date: 20240905
  Transmission Date: 20241016
  Serious: Yes (Congenital Anomaly)
  Sender: MYLAN
  Company Number: DE-EMBRYOTOX-202403143

PATIENT
  Sex: Male
  Weight: 2.44 kg

DRUGS (5)
  1. METOPROLOL [Suspect]
     Active Substance: METOPROLOL
     Indication: Arrhythmia
     Dosage: 23.75 MILLIGRAM, QD (23.75 [MG/D ]/ SINCE 04/21)
     Route: 064
     Dates: start: 20230731, end: 20240423
  2. ASPIRIN [Concomitant]
     Active Substance: ASPIRIN
     Indication: Prophylaxis
     Dosage: 100 MILLIGRAM, QD (100 [MG/D ]/ GESTOSIS PROPHYLAXIS)
     Route: 064
  3. VAXIGRIP [Concomitant]
     Active Substance: INFLUENZA VIRUS VACCINE
     Indication: Immunisation
     Dosage: UNK
     Route: 064
     Dates: start: 20231109, end: 20231109
  4. LEVOTHYROXINE SODIUM [Concomitant]
     Active Substance: LEVOTHYROXINE SODIUM
     Indication: Autoimmune thyroiditis
     Dosage: 88 MICROGRAM, QD (88 (?G/D )
     Route: 064
     Dates: start: 20230731, end: 20240423
  5. BOOSTRIX [Concomitant]
     Active Substance: TETANUS TOXOID, REDUCED DIPHTHERIA TOXOID AND ACELLULAR PERTUSSIS VACCINE, ADSORBED ANTIGENS
     Indication: Immunisation
     Dosage: UNK
     Route: 064
     Dates: start: 20240219, end: 20240219

REACTIONS (3)
  - Talipes [Recovering/Resolving]
  - Cryptorchism [Unknown]
  - Foetal exposure during pregnancy [Unknown]

NARRATIVE: CASE EVENT DATE: 20240401
